FAERS Safety Report 8620445-3 (Version None)
Quarter: 2012Q3

REPORT INFORMATION
  Report Type: 
  Country: None (occurrence: None)
  Receive Date: 20120820
  Receipt Date: 20120820
  Transmission Date: 20120928
  Serious: No
  Sender: FDA-Public Use
  Company Number: None

PATIENT
  Sex: Male

DRUGS (4)
  1. PREZISTA [Suspect]
     Dosage: II QD, PO
     Route: 048
  2. MULTIVITAMIN [Suspect]
     Indication: HIV INFECTION
     Dosage: I QD, PO
     Route: 048
     Dates: start: 20110601
  3. NORVIR [Suspect]
  4. TRUVADA [Suspect]

REACTIONS (1)
  - RASH PRURITIC [None]
